FAERS Safety Report 9914264 (Version 1)
Quarter: 2014Q1

REPORT INFORMATION
  Report Type: Spontaneous
  Country: US (occurrence: None)
  Receive Date: 20140218
  Receipt Date: 20140218
  Transmission Date: 20141002
  Serious: Yes (Congenital Anomaly)
  Sender: FDA-Public Use
  Company Number: 2014AP01153

PATIENT
  Sex: Female

DRUGS (1)
  1. PAROXETINE HCL TABLETS [Suspect]
     Indication: DEPRESSION

REACTIONS (5)
  - Foetal exposure during pregnancy [None]
  - Coarctation of the aorta [None]
  - Patent ductus arteriosus [None]
  - Bicuspid aortic valve [None]
  - Congenital aortic valve stenosis [None]
